FAERS Safety Report 25607778 (Version 1)
Quarter: 2025Q3

REPORT INFORMATION
  Report Type: Spontaneous
  Country: EU (occurrence: EU)
  Receive Date: 20250725
  Receipt Date: 20250725
  Transmission Date: 20251020
  Serious: Yes (Other)
  Sender: MYLAN
  Company Number: None

PATIENT
  Age: 31 Year
  Sex: Male

DRUGS (12)
  1. ALPRAZOLAM [Suspect]
     Active Substance: ALPRAZOLAM
     Indication: Product used for unknown indication
     Dosage: 1 DOSAGE FORM, QD (1 DF = 1 TABLET5-6 TABLET)
     Dates: start: 20250607, end: 20250607
  2. ALPRAZOLAM [Suspect]
     Active Substance: ALPRAZOLAM
     Dosage: 1 DOSAGE FORM, QD (1 DF = 1 TABLET5-6 TABLET)
     Route: 048
     Dates: start: 20250607, end: 20250607
  3. ALPRAZOLAM [Suspect]
     Active Substance: ALPRAZOLAM
     Dosage: 1 DOSAGE FORM, QD (1 DF = 1 TABLET5-6 TABLET)
     Route: 048
     Dates: start: 20250607, end: 20250607
  4. ALPRAZOLAM [Suspect]
     Active Substance: ALPRAZOLAM
     Dosage: 1 DOSAGE FORM, QD (1 DF = 1 TABLET5-6 TABLET)
     Dates: start: 20250607, end: 20250607
  5. BUPROPION [Suspect]
     Active Substance: BUPROPION
     Indication: Product used for unknown indication
     Dosage: 32 DOSAGE FORM, QD (1 DF = 1 CRUSHED TABLET)
     Dates: start: 20250608, end: 20250608
  6. BUPROPION [Suspect]
     Active Substance: BUPROPION
     Dosage: 32 DOSAGE FORM, QD (1 DF = 1 CRUSHED TABLET)
     Route: 065
     Dates: start: 20250608, end: 20250608
  7. BUPROPION [Suspect]
     Active Substance: BUPROPION
     Dosage: 32 DOSAGE FORM, QD (1 DF = 1 CRUSHED TABLET)
     Route: 065
     Dates: start: 20250608, end: 20250608
  8. BUPROPION [Suspect]
     Active Substance: BUPROPION
     Dosage: 32 DOSAGE FORM, QD (1 DF = 1 CRUSHED TABLET)
     Dates: start: 20250608, end: 20250608
  9. SUBUTEX [Suspect]
     Active Substance: BUPRENORPHINE HYDROCHLORIDE
     Indication: Product used for unknown indication
     Dosage: 48 MILLIGRAM, QD (5-6 TABLETS)
     Dates: start: 20250607, end: 20250607
  10. SUBUTEX [Suspect]
     Active Substance: BUPRENORPHINE HYDROCHLORIDE
     Dosage: 48 MILLIGRAM, QD (5-6 TABLETS)
     Route: 048
     Dates: start: 20250607, end: 20250607
  11. SUBUTEX [Suspect]
     Active Substance: BUPRENORPHINE HYDROCHLORIDE
     Dosage: 48 MILLIGRAM, QD (5-6 TABLETS)
     Route: 048
     Dates: start: 20250607, end: 20250607
  12. SUBUTEX [Suspect]
     Active Substance: BUPRENORPHINE HYDROCHLORIDE
     Dosage: 48 MILLIGRAM, QD (5-6 TABLETS)
     Dates: start: 20250607, end: 20250607

REACTIONS (4)
  - Injection site swelling [Unknown]
  - Peripheral swelling [Unknown]
  - Drug abuse [Unknown]
  - Intentional overdose [Unknown]

NARRATIVE: CASE EVENT DATE: 20250608
